FAERS Safety Report 7491469-7 (Version None)
Quarter: 2011Q2

REPORT INFORMATION
  Report Type: 
  Country: None (occurrence: None)
  Receive Date: 20110519
  Receipt Date: 20110511
  Transmission Date: 20111010
  Serious: Yes (Hospitalization)
  Sender: FDA-Public Use
  Company Number: PHHO2011US04885

PATIENT
  Age: 60 Year
  Sex: Female

DRUGS (2)
  1. REMODULIN [Concomitant]
  2. IMATINIB MESYLATE [Suspect]
     Indication: PULMONARY ARTERIAL HYPERTENSION
     Dosage: UNK
     Route: 048
     Dates: start: 20100505

REACTIONS (3)
  - CATHETER SITE PAIN [None]
  - CATHETER SITE ERYTHEMA [None]
  - DEVICE RELATED INFECTION [None]
